FAERS Safety Report 15516508 (Version 1)
Quarter: 2018Q4

REPORT INFORMATION
  Report Type: Report from Study
  Country: None (occurrence: HU)
  Receive Date: 20181017
  Receipt Date: 20181017
  Transmission Date: 20190205
  Serious: Yes (Hospitalization)
  Sender: FDA-Public Use
  Company Number: HU-ABBVIE-18S-076-2521409-00

PATIENT
  Age: 77 Year
  Sex: Female

DRUGS (5)
  1. STALEVO [Concomitant]
     Active Substance: CARBIDOPA\ENTACAPONE\LEVODOPA
     Indication: PARKINSON^S DISEASE
     Dosage: 150/37.5/200MG 1 TABLET IN THE EVENING
     Route: 048
  2. DUODOPA [Suspect]
     Active Substance: CARBIDOPA\LEVODOPA
     Indication: PARKINSON^S DISEASE
     Dosage: MD 1.7 ML; CD 2.0 ML/H; ED 0.9 ML
     Route: 050
     Dates: start: 20130814
  3. CITALOPRAM [Concomitant]
     Active Substance: CITALOPRAM HYDROBROMIDE
     Indication: PRODUCT USED FOR UNKNOWN INDICATION
     Dosage: MORNING:1 TBL, EVENING: 0.5 TBL
     Route: 048
  4. PALIXID [Concomitant]
     Indication: DEPRESSION
     Dosage: 10 MG IN THE EVENING
     Dates: start: 201804
  5. RIVOTRIL [Concomitant]
     Active Substance: CLONAZEPAM
     Indication: MOOD ALTERED
     Route: 048

REACTIONS (2)
  - Fall [Recovering/Resolving]
  - Ulna fracture [Recovering/Resolving]

NARRATIVE: CASE EVENT DATE: 20181001
